FAERS Safety Report 18966248 (Version 1)
Quarter: 2021Q1

REPORT INFORMATION
  Report Type: Report from Study
  Country: UY (occurrence: UY)
  Receive Date: 20210303
  Receipt Date: 20210303
  Transmission Date: 20210420
  Serious: Yes (Other)
  Sender: FDA-Public Use
  Company Number: UY-TAKEDA-2021TUS003325

PATIENT
  Sex: Male

DRUGS (1)
  1. VELAGLUCERASE ALFA [Suspect]
     Active Substance: VELAGLUCERASE ALFA
     Indication: GAUCHER^S DISEASE
     Dosage: 60 MILLIGRAM/KILOGRAM, EVERY 15 DAYS
     Route: 042

REACTIONS (2)
  - Muscle contracture [Recovering/Resolving]
  - Erysipelas [Recovering/Resolving]
